FAERS Safety Report 6270371-2 (Version None)
Quarter: 2009Q3

REPORT INFORMATION
  Report Type: 
  Country: None (occurrence: None)
  Receive Date: 20090716
  Receipt Date: 20090707
  Transmission Date: 20100115
  Serious: Yes (Hospitalization)
  Sender: FDA-Public Use
  Company Number: B0583768A

PATIENT
  Sex: Female

DRUGS (3)
  1. LAMICTAL [Suspect]
     Indication: EPILEPSY
     Dosage: 100MG PER DAY
     Route: 065
     Dates: start: 20090520, end: 20090603
  2. TOPAMAX [Suspect]
     Indication: DRUG USE FOR UNKNOWN INDICATION
     Dosage: 200MG PER DAY
     Dates: start: 20090604, end: 20090607
  3. VALPROIC ACID [Concomitant]

REACTIONS (4)
  - ILL-DEFINED DISORDER [None]
  - OCULAR HYPERAEMIA [None]
  - RASH [None]
  - STEVENS-JOHNSON SYNDROME [None]
